FAERS Safety Report 5776087-0 (Version None)
Quarter: 2008Q2

REPORT INFORMATION
  Report Type: 
  Country: None (occurrence: None)
  Receive Date: 20080613
  Receipt Date: 20080529
  Transmission Date: 20081010
  Serious: Yes (Hospitalization)
  Sender: FDA-Public Use
  Company Number: IDA-00080

PATIENT
  Sex: Female

DRUGS (8)
  1. PROPRANOLOL [Suspect]
     Dosage: 160 MG DAILY PO, FORMULATION: CAPS_CR
     Route: 048
  2. VIRAFERONPEG [Suspect]
     Dosage: 80 UG WEEK SQ,
     Dates: start: 20071101, end: 20080301
  3. REBETOL [Suspect]
     Dosage: 1 G DAILY PO
     Route: 048
     Dates: start: 20071101, end: 20080325
  4. MEDIATOR (BENFLUOREX HYDROCHLORIDE) [Concomitant]
  5. STROMECTOL [Concomitant]
  6. LEVOTHYROXINE SODIUM [Concomitant]
  7. THYROID MICRONODULES [Concomitant]
  8. PANTOPRAZOLE SODIUM [Concomitant]

REACTIONS (2)
  - CONDITION AGGRAVATED [None]
  - PSORIASIS [None]
